FAERS Safety Report 9953148 (Version 1)
Quarter: 2014Q1

REPORT INFORMATION
  Report Type: Report from Study
  Country: US (occurrence: US)
  Receive Date: 20140304
  Receipt Date: 20140304
  Transmission Date: 20141002
  Serious: No
  Sender: FDA-Public Use
  Company Number: US-ABBVIE-13P-163-1076918-00

PATIENT
  Age: 62 Year
  Sex: Male

DRUGS (7)
  1. HUMIRA [Suspect]
     Indication: COLITIS ULCERATIVE
     Dates: start: 20130320
  2. HUMIRA [Suspect]
     Dates: start: 20130403
  3. ASACOL [Concomitant]
     Indication: PRODUCT USED FOR UNKNOWN INDICATION
     Dosage: 12 PILLS DAILY
  4. 6MP [Concomitant]
     Indication: PRODUCT USED FOR UNKNOWN INDICATION
  5. BUPROPION [Concomitant]
     Indication: ANXIETY
  6. PROTONIX [Concomitant]
     Indication: GASTROOESOPHAGEAL REFLUX DISEASE
  7. SIMVASTATIN [Concomitant]
     Indication: BLOOD CHOLESTEROL INCREASED

REACTIONS (1)
  - Cough [Not Recovered/Not Resolved]
